FAERS Safety Report 6572161-X (Version None)
Quarter: 2010Q1

REPORT INFORMATION
  Report Type: 
  Country: None (occurrence: None)
  Receive Date: 20100205
  Receipt Date: 20100128
  Transmission Date: 20100710
  Serious: Yes (Hospitalization)
  Sender: FDA-Public Use
  Company Number: B0516403A

PATIENT
  Sex: Female
  Weight: 70 kg

DRUGS (2)
  1. LAPATINIB [Suspect]
     Dosage: 1250MG PER DAY
     Route: 048
     Dates: start: 20071207
  2. CAPECITABINE [Suspect]
     Dosage: 2150MG PER DAY
     Route: 048
     Dates: start: 20071207

REACTIONS (5)
  - ENDOCARDITIS [None]
  - ERYSIPELAS [None]
  - OEDEMA PERIPHERAL [None]
  - PRURITUS [None]
  - VASCULITIS [None]
